FAERS Safety Report 22003015 (Version 2)
Quarter: 2023Q2

REPORT INFORMATION
  Report Type: Spontaneous
  Country: GB (occurrence: None)
  Receive Date: 20230217
  Receipt Date: 20230607
  Transmission Date: 20230721
  Serious: Yes (Death, Hospitalization, Other)
  Sender: FDA-Public Use
  Company Number: GB-Hikma Pharmaceuticals USA Inc.-GB-H14001-23-00433

PATIENT
  Age: 73 Year
  Sex: Female
  Weight: 63.2 kg

DRUGS (4)
  1. CARBOPLATIN [Suspect]
     Active Substance: CARBOPLATIN
     Indication: Anal cancer
     Dosage: 510 MILLIGRAM, AUC 5, EVERY 28 DAYS (DAY 1 OF EACH 28-DAY CYCLE)
     Route: 042
     Dates: start: 20211216
  2. RETIFANLIMAB [Suspect]
     Active Substance: RETIFANLIMAB
     Indication: Anal cancer
     Dosage: 500 MG EVERY 28 DAYS (DAY ONE OF EACH 28-DAY CYCLE)
     Route: 042
     Dates: start: 20211216
  3. PACLITAXEL [Suspect]
     Active Substance: PACLITAXEL
     Indication: Anal cancer
     Dosage: 135 MILLIGRAM, 80 MG/M2 (DAYS 1, 8, AND 15 OF EACH 28-DAY CYCLE)
     Route: 042
     Dates: start: 20211216
  4. RIVAROXABAN [Concomitant]
     Active Substance: RIVAROXABAN
     Indication: Product used for unknown indication
     Dosage: UNKNOWN
     Route: 065
     Dates: start: 20220628

REACTIONS (16)
  - Disease progression [Fatal]
  - Dyspnoea [Recovered/Resolved]
  - Pulmonary embolism [Unknown]
  - Panic reaction [Unknown]
  - Abdominal discomfort [Unknown]
  - Flatulence [Unknown]
  - C-reactive protein increased [Unknown]
  - Inflammation [Unknown]
  - Activated partial thromboplastin time abnormal [Unknown]
  - Blood albumin abnormal [Unknown]
  - Blood potassium abnormal [Unknown]
  - Haematocrit abnormal [Unknown]
  - Haemoglobin abnormal [Unknown]
  - Prothrombin time abnormal [Unknown]
  - Red blood cell count abnormal [Unknown]
  - Blood magnesium decreased [Unknown]

NARRATIVE: CASE EVENT DATE: 20220815
